FAERS Safety Report 11897137 (Version 6)
Quarter: 2016Q2

REPORT INFORMATION
  Report Type: Report from Study
  Country: US (occurrence: US)
  Receive Date: 20160107
  Receipt Date: 20160503
  Transmission Date: 20160815
  Serious: Yes (Hospitalization)
  Sender: FDA-Public Use
  Company Number: US-BIOGEN-2016BI00168673

PATIENT
  Age: 45 Year
  Sex: Female

DRUGS (8)
  1. AVONEX [Suspect]
     Active Substance: INTERFERON BETA-1A
     Indication: MULTIPLE SCLEROSIS
     Route: 030
     Dates: start: 201509
  2. AVONEX [Interacting]
     Active Substance: INTERFERON BETA-1A
     Route: 030
     Dates: start: 20151012
  3. PROZAC [Concomitant]
     Active Substance: FLUOXETINE HYDROCHLORIDE
     Indication: PRODUCT USED FOR UNKNOWN INDICATION
     Route: 065
  4. AVONEX [Interacting]
     Active Substance: INTERFERON BETA-1A
     Route: 030
     Dates: end: 201511
  5. VITAMIN D [Concomitant]
     Active Substance: CHOLECALCIFEROL
     Indication: PRODUCT USED FOR UNKNOWN INDICATION
     Route: 065
  6. AVONEX [Interacting]
     Active Substance: INTERFERON BETA-1A
     Route: 030
     Dates: start: 201511
  7. AVONEX [Interacting]
     Active Substance: INTERFERON BETA-1A
     Route: 065
     Dates: start: 20151222
  8. TYLENOL WITH CODEINE [Concomitant]
     Active Substance: ACETAMINOPHEN\CODEINE PHOSPHATE
     Indication: PRODUCT USED FOR UNKNOWN INDICATION
     Route: 065

REACTIONS (28)
  - Menstrual disorder [Unknown]
  - Aphasia [Unknown]
  - Vitamin D decreased [Unknown]
  - Insomnia [Unknown]
  - Incorrect route of drug administration [Unknown]
  - Decreased interest [Not Recovered/Not Resolved]
  - Feeling of body temperature change [Unknown]
  - Muscle spasms [Unknown]
  - Crying [Unknown]
  - Depressed mood [Unknown]
  - Feeling abnormal [Unknown]
  - Decreased appetite [Unknown]
  - Anaemia [Unknown]
  - Multiple sclerosis relapse [Recovered/Resolved]
  - Depression [Not Recovered/Not Resolved]
  - Dizziness [Unknown]
  - Pain of skin [Unknown]
  - Palpitations [Unknown]
  - Laboratory test abnormal [Unknown]
  - Blindness [Unknown]
  - Inflammation [Not Recovered/Not Resolved]
  - Procedural pain [Unknown]
  - Intervertebral disc protrusion [Recovered/Resolved]
  - Tremor [Unknown]
  - Stress [Unknown]
  - Hypersensitivity [Unknown]
  - Pain in extremity [Unknown]
  - Pain [Unknown]

NARRATIVE: CASE EVENT DATE: 201510
